FAERS Safety Report 14814482 (Version 4)
Quarter: 2018Q3

REPORT INFORMATION
  Report Type: Spontaneous
  Country: IE (occurrence: IE)
  Receive Date: 20180426
  Receipt Date: 20180809
  Transmission Date: 20181010
  Serious: Yes (Hospitalization, Other)
  Sender: FDA-Public Use
  Company Number: IE-TEVA-2018-IE-885413

PATIENT
  Age: 66 Year
  Sex: Female

DRUGS (6)
  1. FULVESTRANT. [Suspect]
     Active Substance: FULVESTRANT
     Route: 030
     Dates: start: 201702
  2. DENOSUMAB [Concomitant]
     Active Substance: DENOSUMAB
  3. ZOLEDRONIC ACID [Suspect]
     Active Substance: ZOLEDRONIC ACID
     Indication: BREAST CANCER
     Route: 065
     Dates: start: 2015, end: 2017
  4. ZOLEDRONIC ACID [Suspect]
     Active Substance: ZOLEDRONIC ACID
     Indication: METASTASES TO BONE
  5. PALBOCICLIB [Suspect]
     Active Substance: PALBOCICLIB
     Route: 048
     Dates: start: 201702
  6. ANASTROZOLE. [Suspect]
     Active Substance: ANASTROZOLE
     Indication: PRODUCT USED FOR UNKNOWN INDICATION
     Route: 048
     Dates: start: 2015, end: 2017

REACTIONS (11)
  - Anaemia [Unknown]
  - Blood creatinine increased [Unknown]
  - Thrombocytopenia [Unknown]
  - Dehydration [Unknown]
  - Pain [Unknown]
  - Carbohydrate antigen 15-3 increased [Unknown]
  - Poor venous access [Unknown]
  - Nausea [Unknown]
  - Constipation [Unknown]
  - Metastases to lung [Unknown]
  - Fatigue [Unknown]

NARRATIVE: CASE EVENT DATE: 2017
